FAERS Safety Report 5060426-2 (Version None)
Quarter: 2006Q3

REPORT INFORMATION
  Report Type: 
  Country: None (occurrence: None)
  Receive Date: 20060720
  Receipt Date: 20060714
  Transmission Date: 20061208
  Serious: Yes (Hospitalization, Other)
  Sender: FDA-Public Use
  Company Number: 226646

PATIENT
  Age: 68 Year
  Sex: Male

DRUGS (10)
  1. RAPTIVA [Suspect]
     Indication: PSORIASIS
     Dosage: 0.8 ML, SUBCUTANEOUS; 1.2 ML, 1/WEEK, SUBCUTANEOUS
     Route: 058
     Dates: start: 20050803, end: 20060127
  2. RAPTIVA [Suspect]
     Indication: PSORIASIS
     Dosage: 0.8 ML, SUBCUTANEOUS; 1.2 ML, 1/WEEK, SUBCUTANEOUS
     Route: 058
     Dates: end: 20060127
  3. DOVONEX OINTMENT (CALCIPOTRIENE) [Concomitant]
  4. SORIATANE [Concomitant]
  5. TMC (TRIAMCINOLONE) [Concomitant]
  6. ATARAX [Concomitant]
  7. CLOBETASOL (CLOBETASOL PROPIONATE) [Concomitant]
  8. CAPEX SHAMPOO (FLUOCINOLONE ACETONIDE) [Concomitant]
  9. TAR BASED SHAMPOO (TAR NOS) [Concomitant]
  10. SARNA (CAMPHOR, MENTHOL, PHENOL) [Concomitant]

REACTIONS (3)
  - CHRONIC LYMPHOCYTIC LEUKAEMIA [None]
  - NEUROPATHY [None]
  - OSTEOPOROSIS [None]
